FAERS Safety Report 24809489 (Version 2)
Quarter: 2025Q1

REPORT INFORMATION
  Report Type: Spontaneous
  Country: US (occurrence: US)
  Receive Date: 20250106
  Receipt Date: 20250224
  Transmission Date: 20250409
  Serious: Yes (Death, Hospitalization, Other)
  Sender: BRISTOL-MYERS SQUIBB COMPANY
  Company Number: US-BRISTOL-MYERS SQUIBB COMPANY-2025-001695

PATIENT
  Age: 74 Year
  Sex: Female

DRUGS (4)
  1. ELIQUIS [Suspect]
     Active Substance: APIXABAN
     Indication: Cerebrovascular accident prophylaxis
     Route: 048
  2. ELIQUIS [Suspect]
     Active Substance: APIXABAN
     Indication: Coronary artery disease
  3. ELIQUIS [Suspect]
     Active Substance: APIXABAN
     Indication: Peripheral arterial occlusive disease
  4. ELIQUIS [Suspect]
     Active Substance: APIXABAN
     Indication: Cardiac ventricular thrombosis

REACTIONS (1)
  - Adult failure to thrive [Fatal]
